FAERS Safety Report 22236718 (Version 2)
Quarter: 2023Q2

REPORT INFORMATION
  Report Type: Spontaneous
  Country: US (occurrence: US)
  Receive Date: 20230420
  Receipt Date: 20230601
  Transmission Date: 20230722
  Serious: No
  Sender: FDA-Public Use
  Company Number: US-ALLERGAN-2300640US

PATIENT
  Age: 96 Year
  Sex: Female
  Weight: 47.166 kg

DRUGS (1)
  1. RESTASIS [Suspect]
     Active Substance: CYCLOSPORINE
     Indication: Dry eye
     Dosage: 2 GTT, QD
     Route: 047
     Dates: start: 20221218

REACTIONS (6)
  - Conjunctival haemorrhage [Unknown]
  - Glaucoma [Unknown]
  - Eyelid cyst [Unknown]
  - Eyelid thickening [Unknown]
  - Madarosis [Unknown]
  - Eyelids pruritus [Unknown]

NARRATIVE: CASE EVENT DATE: 20230101
